FAERS Safety Report 6511182-X (Version None)
Quarter: 2009Q4

REPORT INFORMATION
  Report Type: 
  Country: None (occurrence: None)
  Receive Date: 20091217
  Receipt Date: 20091207
  Transmission Date: 20100525
  Serious: Yes (Other)
  Sender: FDA-Public Use
  Company Number: 001384

PATIENT
  Sex: Male

DRUGS (3)
  1. LACOSAMIDE [Suspect]
     Dosage: 50 MG QD ORAL, 200 MG BID ORAL
     Route: 048
  2. TRILEPTAL [Concomitant]
  3. LAMICTAL [Concomitant]

REACTIONS (3)
  - DROOLING [None]
  - SELF-MEDICATION [None]
  - SWOLLEN TONGUE [None]
